FAERS Safety Report 8457773-0 (Version None)
Quarter: 2012Q2

REPORT INFORMATION
  Report Type: 
  Country: None (occurrence: None)
  Receive Date: 20120323
  Receipt Date: 20110810
  Transmission Date: 20120825
  Serious: Yes (Other)
  Sender: FDA-Public Use
  Company Number: 163-21880-11081368

PATIENT
  Age: 81 Year
  Sex: Female

DRUGS (6)
  1. REVLIMID [Suspect]
     Indication: MULTIPLE MYELOMA
     Dosage: 25 MG, X 21, PO
     Route: 048
     Dates: start: 20110520
  2. COUMADIN [Concomitant]
  3. SENOKOT [Concomitant]
  4. LOVENOX [Concomitant]
  5. DEXAMETHASONE [Concomitant]
  6. BACTRIM DS [Concomitant]

REACTIONS (1)
  - THROMBOSIS [None]
